FAERS Safety Report 5067206-2 (Version None)
Quarter: 2006Q3

REPORT INFORMATION
  Report Type: 
  Country: None (occurrence: None)
  Receive Date: 20060727
  Receipt Date: 20060713
  Transmission Date: 20061208
  Serious: Yes (Other)
  Sender: FDA-Public Use
  Company Number: S06-SWI-02899-01

PATIENT
  Age: 54 Year
  Sex: Male

DRUGS (1)
  1. ESCITALOPRAM OXALATE [Suspect]
     Indication: DEPRESSION
     Dosage: 10 MG QD PO
     Route: 048
     Dates: start: 20060616, end: 20060616

REACTIONS (6)
  - ABDOMINAL PAIN [None]
  - EPISTAXIS [None]
  - FORMICATION [None]
  - HEPATIC PAIN [None]
  - HYPOTENSION [None]
  - NAUSEA [None]
